FAERS Safety Report 6478313-1 (Version None)
Quarter: 2009Q4

REPORT INFORMATION
  Report Type: 
  Country: None (occurrence: None)
  Receive Date: 20091202
  Receipt Date: 20091201
  Transmission Date: 20100525
  Serious: Yes (Other)
  Sender: FDA-Public Use
  Company Number: 2009SP007115

PATIENT
  Age: 45 Year
  Sex: Male
  Weight: 80 kg

DRUGS (8)
  1. PEG-INTRON [Suspect]
     Indication: HEPATITIS C
     Dosage: 120 MCG; QW; SC
     Route: 058
     Dates: start: 20081202, end: 20090304
  2. REBETOL [Suspect]
     Indication: HEPATITIS C
     Dosage: 800 MG; QD; PO
     Route: 048
     Dates: start: 20081202, end: 20090311
  3. PHENYTOIN [Suspect]
     Indication: EPILEPSY
     Dosage: 300 MG; PO
     Route: 048
  4. BELDERIL [Concomitant]
  5. AMARYL [Concomitant]
  6. DIOVAN [Concomitant]
  7. RIZE [Concomitant]
  8. SUMIFERON [Concomitant]

REACTIONS (11)
  - ASTHENOPIA [None]
  - CYANOSIS [None]
  - DNA ANTIBODY POSITIVE [None]
  - EXTREMITY NECROSIS [None]
  - GRIP STRENGTH DECREASED [None]
  - HYPOAESTHESIA [None]
  - LUPUS-LIKE SYNDROME [None]
  - PAIN IN EXTREMITY [None]
  - PERIPHERAL COLDNESS [None]
  - PRURITUS [None]
  - RASH [None]
